FAERS Safety Report 20010110 (Version 1)
Quarter: 2021Q4

REPORT INFORMATION
  Report Type: Spontaneous
  Country: US (occurrence: US)
  Receive Date: 20211029
  Receipt Date: 20211029
  Transmission Date: 20220303
  Serious: Yes (Other)
  Sender: FDA-Public Use
  Company Number: US-PFIZER INC-202101393647

PATIENT
  Age: 63 Year
  Sex: Female
  Weight: 51.26 kg

DRUGS (1)
  1. DEPO-PROVERA [Suspect]
     Active Substance: MEDROXYPROGESTERONE ACETATE
     Dosage: 150 MG (150MG EVERY MONTH FOR 3 MONTHS)

REACTIONS (9)
  - Triple negative breast cancer [Unknown]
  - Suicidal ideation [Unknown]
  - Thrombosis [Unknown]
  - Haemorrhage [Unknown]
  - Depression [Unknown]
  - Hepatic enzyme increased [Unknown]
  - Muscle spasms [Unknown]
  - Fibrocystic breast disease [Unknown]
  - Headache [Unknown]

NARRATIVE: CASE EVENT DATE: 20190101
